FAERS Safety Report 10744768 (Version 1)
Quarter: 2015Q1

REPORT INFORMATION
  Report Type: Spontaneous
  Country: US (occurrence: None)
  Receive Date: 20150126
  Receipt Date: 20150126
  Transmission Date: 20150721
  Serious: Yes (Hospitalization)
  Sender: FDA-Public Use
  Company Number: None

PATIENT
  Age: 62 Year
  Sex: Male
  Weight: 83.01 kg

DRUGS (5)
  1. OXALIPLATIN. [Suspect]
     Active Substance: OXALIPLATIN
     Indication: PANCREATIC CARCINOMA
     Route: 042
  2. KIT # FOR AGREXANE [Concomitant]
  3. 5-FU [Suspect]
     Active Substance: FLUOROURACIL
  4. ABRAXANE [Suspect]
     Active Substance: PACLITAXEL
     Route: 042
  5. LEUCOVORIN [Suspect]
     Active Substance: LEUCOVORIN
     Route: 042

REACTIONS (8)
  - Hepatic infection [None]
  - Adenocarcinoma [None]
  - Oedema peripheral [None]
  - Peritonitis [None]
  - Deep vein thrombosis [None]
  - Liver abscess [None]
  - Platelet count decreased [None]
  - Dyspnoea exertional [None]

NARRATIVE: CASE EVENT DATE: 20150107
